FAERS Safety Report 20633670 (Version 3)
Quarter: 2022Q3

REPORT INFORMATION
  Report Type: Report from Study
  Country: US (occurrence: US)
  Receive Date: 20220324
  Receipt Date: 20220721
  Transmission Date: 20221027
  Serious: Yes (Other)
  Sender: FDA-Public Use
  Company Number: US-JAZZ-2022-US-008476

PATIENT
  Sex: Female
  Weight: 123.4 kg

DRUGS (11)
  1. XYREM [Suspect]
     Active Substance: SODIUM OXYBATE
     Indication: Narcolepsy
     Dosage: 2.25 GRAM, BID
     Route: 048
     Dates: start: 201607, end: 201609
  2. XYREM [Suspect]
     Active Substance: SODIUM OXYBATE
     Indication: Cataplexy
     Dosage: 3 GRAM, BID
     Route: 048
     Dates: start: 201609
  3. GLUTEN [Suspect]
     Active Substance: WHEAT GLUTEN
     Indication: Product used for unknown indication
     Dosage: UNK
     Dates: start: 20220316
  4. LAMOTRIGINE [Suspect]
     Active Substance: LAMOTRIGINE
     Indication: Product used for unknown indication
     Dosage: UNK
     Dates: start: 20220309
  5. ARIPIPRAZOLE [Suspect]
     Active Substance: ARIPIPRAZOLE
     Indication: Product used for unknown indication
     Dosage: UNK
     Dates: start: 20220113
  6. MIRAPEX [Concomitant]
     Active Substance: PRAMIPEXOLE DIHYDROCHLORIDE
     Indication: Product used for unknown indication
     Dosage: UNK
  7. FLONASE ALLERGY RELIEF [Concomitant]
     Active Substance: FLUTICASONE PROPIONATE
     Indication: Product used for unknown indication
  8. VYVANSE [Concomitant]
     Active Substance: LISDEXAMFETAMINE DIMESYLATE
     Indication: Product used for unknown indication
  9. BETAMETHASONE [Concomitant]
     Active Substance: BETAMETHASONE
     Indication: Product used for unknown indication
  10. OXYCODONE AND ACETAMINOPHEN [Concomitant]
     Active Substance: ACETAMINOPHEN\OXYCODONE HYDROCHLORIDE
     Indication: Product used for unknown indication
     Dosage: UNK
     Dates: start: 20220225
  11. MYRBETRIQ [Concomitant]
     Active Substance: MIRABEGRON
     Indication: Product used for unknown indication

REACTIONS (5)
  - Upper limb fracture [Unknown]
  - Hepatic steatosis [Recovered/Resolved]
  - Hepatic enzyme abnormal [Recovered/Resolved]
  - Drug hypersensitivity [Unknown]
  - Intentional dose omission [Unknown]
